FAERS Safety Report 8303032-6 (Version None)
Quarter: 2012Q2

REPORT INFORMATION
  Report Type: 
  Country: None (occurrence: None)
  Receive Date: 20120421
  Receipt Date: 20120411
  Transmission Date: 20120825
  Serious: Yes (Other)
  Sender: FDA-Public Use
  Company Number: US-VERTEX PHARMACEUTICALS INC.-AE-2012-005169

PATIENT
  Sex: Female

DRUGS (3)
  1. PEGASYS [Concomitant]
     Indication: HEPATITIS C
     Dates: start: 20120214
  2. INCIVEK [Suspect]
     Indication: HEPATITIS C
     Route: 048
     Dates: start: 20120214, end: 20120229
  3. RIBAVIRIN [Concomitant]
     Indication: HEPATITIS C
     Dates: start: 20120214

REACTIONS (6)
  - GASTROINTESTINAL MUCOSAL DISORDER [None]
  - ABDOMINAL DISTENSION [None]
  - BURNING SENSATION [None]
  - RECTAL HAEMORRHAGE [None]
  - HAEMORRHOIDS [None]
  - LOSS OF CONSCIOUSNESS [None]
